FAERS Safety Report 4816422-0 (Version None)
Quarter: 2005Q4

REPORT INFORMATION
  Report Type: 
  Country: None (occurrence: None)
  Receive Date: 20051028
  Receipt Date: 20051013
  Transmission Date: 20060501
  Serious: Yes (Hospitalization)
  Sender: FDA-Public Use
  Company Number: 2005P1000482

PATIENT
  Age: 59 Year
  Sex: Male
  Weight: 82.6 kg

DRUGS (8)
  1. RETEPLASE (RETEPLASE) [Suspect]
     Indication: ACUTE MYOCARDIAL INFARCTION
     Dosage: IV
     Route: 042
     Dates: start: 20050630, end: 20050630
  2. ABCIXIMAB (ABCIXIMAB) [Suspect]
     Indication: ACUTE MYOCARDIAL INFARCTION
     Dosage: IV
     Route: 042
     Dates: start: 20050630
  3. ASPIRIN [Concomitant]
  4. ATORVASTATIN CALCIUM [Concomitant]
  5. LANSOPRAZOLE [Concomitant]
  6. RAMIPRIL [Concomitant]
  7. CLOPIDOGREL BISULFATE [Concomitant]
  8. METRONIDAZOLE [Concomitant]

REACTIONS (4)
  - CHEST PAIN [None]
  - DIARRHOEA [None]
  - ELECTROCARDIOGRAM T WAVE INVERSION [None]
  - SINUS BRADYCARDIA [None]
